FAERS Safety Report 26068198 (Version 1)
Quarter: 2025Q4

REPORT INFORMATION
  Report Type: Spontaneous
  Country: CA (occurrence: CA)
  Receive Date: 20251120
  Receipt Date: 20251120
  Transmission Date: 20260117
  Serious: Yes (Death, Other)
  Sender: Kenvue
  Company Number: CA-KENVUE-20251105399

PATIENT
  Age: 78 Year

DRUGS (2)
  1. IMODIUM [Suspect]
     Active Substance: LOPERAMIDE HYDROCHLORIDE
     Indication: Product used for unknown indication
     Route: 065
  2. OFEV [Suspect]
     Active Substance: NINTEDANIB
     Indication: Idiopathic pulmonary fibrosis
     Dosage: 150 MILLIGRAM, EVERY 12 HOURS

REACTIONS (10)
  - Blood pressure systolic increased [Fatal]
  - Chest pain [Fatal]
  - Constipation [Fatal]
  - Coronary artery bypass [Fatal]
  - Diarrhoea [Fatal]
  - Forced expiratory volume decreased [Fatal]
  - Forced vital capacity decreased [Fatal]
  - Lower respiratory tract infection [Fatal]
  - Pneumonia [Fatal]
  - Postoperative wound infection [Fatal]
